FAERS Safety Report 9785089 (Version 3)
Quarter: 2015Q4

REPORT INFORMATION
  Report Type: Report from Study
  Country: US (occurrence: US)
  Receive Date: 20131227
  Receipt Date: 20151113
  Transmission Date: 20160305
  Serious: Yes (Death, Other)
  Sender: FDA-Public Use
  Company Number: US-ROCHE-1326247

PATIENT
  Age: 59 Year
  Sex: Female
  Weight: 75.5 kg

DRUGS (9)
  1. ABRAXANE [Concomitant]
     Active Substance: PACLITAXEL
  2. TAXOTERE [Concomitant]
     Active Substance: DOCETAXEL
  3. FLUOROURACIL. [Concomitant]
     Active Substance: FLUOROURACIL
  4. FOLINIC ACID [Concomitant]
     Active Substance: LEUCOVORIN
  5. CARBOPLATIN. [Concomitant]
     Active Substance: CARBOPLATIN
  6. AVASTIN [Suspect]
     Active Substance: BEVACIZUMAB
     Indication: HEPATIC CANCER
  7. OXALIPLATIN. [Concomitant]
     Active Substance: OXALIPLATIN
  8. GEMZAR [Concomitant]
     Active Substance: GEMCITABINE HYDROCHLORIDE
  9. AVASTIN [Suspect]
     Active Substance: BEVACIZUMAB
     Indication: METASTATIC NEOPLASM
     Route: 065
     Dates: start: 20130131

REACTIONS (6)
  - Rectal haemorrhage [Unknown]
  - Jaundice [Unknown]
  - Off label use [Unknown]
  - Painful defaecation [Unknown]
  - Death [Fatal]
  - Haematochezia [Unknown]

NARRATIVE: CASE EVENT DATE: 201309
